FAERS Safety Report 5061465-8 (Version None)
Quarter: 2006Q3

REPORT INFORMATION
  Report Type: 
  Country: None (occurrence: None)
  Receive Date: 20060721
  Receipt Date: 20060710
  Transmission Date: 20061208
  Serious: Yes (Hospitalization, Disabling)
  Sender: FDA-Public Use
  Company Number: 0104-2825

PATIENT
  Age: 47 Year
  Sex: Male
  Weight: 105.6881 kg

DRUGS (16)
  1. ADVICOR [Suspect]
     Indication: HYPERCHOLESTEROLAEMIA
     Dosage: 2 TABLET(S) QHS PO
     Route: 048
     Dates: start: 20031107, end: 20051025
  2. ADVICOR [Suspect]
     Indication: HYPERCHOLESTEROLAEMIA
     Dosage: 3 TABLET(S) QHS PO
     Route: 048
     Dates: start: 20051026, end: 20060403
  3. TRICOR [Suspect]
     Indication: HYPERCHOLESTEROLAEMIA
     Dosage: 145 MG QD PO
     Route: 048
     Dates: start: 20000301
  4. TOPROL-XL [Concomitant]
  5. LASIX [Concomitant]
  6. KLOR-CON [Concomitant]
  7. PAXIL [Concomitant]
  8. TRANXENE [Concomitant]
  9. IMDUR [Concomitant]
  10. FISH OIL [Concomitant]
  11. MULTI-VITAMIN [Concomitant]
  12. LISINOPRIL [Concomitant]
  13. KADIAN [Concomitant]
  14. VICODIN HP [Concomitant]
  15. ASPIRIN [Concomitant]
  16. PRILOSEC [Concomitant]

REACTIONS (12)
  - ABASIA [None]
  - DRUG INTERACTION [None]
  - DYSSTASIA [None]
  - GROIN PAIN [None]
  - HERNIA REPAIR [None]
  - JOINT SWELLING [None]
  - MOVEMENT DISORDER [None]
  - OEDEMA PERIPHERAL [None]
  - PAIN IN EXTREMITY [None]
  - PROCEDURAL PAIN [None]
  - PROCEDURAL SITE REACTION [None]
  - RASH [None]
